FAERS Safety Report 18473696 (Version 1)
Quarter: 2020Q4

REPORT INFORMATION
  Report Type: Spontaneous
  Country: US (occurrence: US)
  Receive Date: 20201106
  Receipt Date: 20201106
  Transmission Date: 20210114
  Serious: No
  Sender: FDA-Public Use
  Company Number: US-SA-2020SA311454

PATIENT

DRUGS (2)
  1. DUPIXENT [Suspect]
     Active Substance: DUPILUMAB
     Indication: PRODUCT USED FOR UNKNOWN INDICATION
     Dosage: 1X200 MG, 1X
     Route: 058
     Dates: start: 20201013, end: 20201013
  2. DUPIXENT [Suspect]
     Active Substance: DUPILUMAB
     Dosage: 1X200 MG, 1X
     Route: 058
     Dates: start: 202010

REACTIONS (1)
  - Incorrect dose administered [Unknown]

NARRATIVE: CASE EVENT DATE: 20201013
